FAERS Safety Report 23670610 (Version 4)
Quarter: 2024Q2

REPORT INFORMATION
  Report Type: Spontaneous
  Country: CA (occurrence: CA)
  Receive Date: 20240326
  Receipt Date: 20240628
  Transmission Date: 20240716
  Serious: Yes (Other)
  Sender: FDA-Public Use
  Company Number: CA-CELLTRION INC.-2023CA014924

PATIENT

DRUGS (17)
  1. INFLECTRA [Suspect]
     Active Substance: INFLIXIMAB-DYYB
     Indication: Crohn^s disease
     Dosage: 5MG/KG, 0, 2, 6 THEN EVERY 8 WEEKS
     Route: 042
     Dates: start: 20220406, end: 20221103
  2. INFLECTRA [Suspect]
     Active Substance: INFLIXIMAB-DYYB
     Dosage: 5MG/KG, EVERY 6 WEEKS
     Route: 042
     Dates: start: 20221215
  3. INFLECTRA [Suspect]
     Active Substance: INFLIXIMAB-DYYB
     Dosage: 5MG/KG, EVERY 6 WEEKS
     Route: 042
     Dates: start: 20230608
  4. INFLECTRA [Suspect]
     Active Substance: INFLIXIMAB-DYYB
     Dosage: 595 MG (5 MG/KG), EVERY 6 WEEKS
     Route: 042
     Dates: start: 20230719
  5. INFLECTRA [Suspect]
     Active Substance: INFLIXIMAB-DYYB
     Dosage: 595 MG (5 MG/KG), EVERY 6 WEEKS
     Route: 042
     Dates: start: 20230831
  6. INFLECTRA [Suspect]
     Active Substance: INFLIXIMAB-DYYB
     Dosage: 610 MG, EVERY 6 WEEKS
     Route: 042
     Dates: start: 20231012
  7. INFLECTRA [Suspect]
     Active Substance: INFLIXIMAB-DYYB
     Dosage: 5 MG/KG (610MG), EVERY 6 WEEKS
     Route: 042
     Dates: start: 20231123
  8. INFLECTRA [Suspect]
     Active Substance: INFLIXIMAB-DYYB
     Dosage: 5 MG/KG (610MG), EVERY 6 WEEKS
     Route: 042
     Dates: start: 20240104
  9. INFLECTRA [Suspect]
     Active Substance: INFLIXIMAB-DYYB
     Dosage: 625MG (5 MG/KG), EVERY 6 WEEKS
     Route: 042
     Dates: start: 20240216
  10. INFLECTRA [Suspect]
     Active Substance: INFLIXIMAB-DYYB
     Dosage: 520MG, AFTER 5 WEEKS AND 6 DAYS (EVERY 6 WEEKS)
     Route: 042
     Dates: start: 20240328
  11. INFLECTRA [Suspect]
     Active Substance: INFLIXIMAB-DYYB
     Dosage: 5MG/KG, EVERY 6 WEEKS (630 MG, 6 WEEKS)
     Route: 042
     Dates: start: 20240508
  12. INFLECTRA [Suspect]
     Active Substance: INFLIXIMAB-DYYB
     Dosage: 650 MG, EVERY 6 WEEKS (PRESCRIBED 5MG/KG, EVERY 6 WEEKS)
     Route: 042
     Dates: start: 20240620
  13. ALLOPURINOL [Concomitant]
     Active Substance: ALLOPURINOL
     Dosage: 300 MG, 1X/DAY
     Route: 065
  14. AMLODIPINE [Concomitant]
     Active Substance: AMLODIPINE BESYLATE
     Dosage: 10 MG, 1X/DAY
     Route: 065
  15. IRBESARTAN [Concomitant]
     Active Substance: IRBESARTAN
     Dosage: 25 MG, 1X/DAY
     Route: 065
  16. LANSOPRAZOLE [Concomitant]
     Active Substance: LANSOPRAZOLE
     Dosage: 30 MG, 1X/DAY
     Route: 065
  17. VITAMIN B12 [Concomitant]
     Active Substance: CYANOCOBALAMIN
     Dosage: 1 DF, MONTHLY, DOSE - UNK
     Route: 065

REACTIONS (12)
  - Rectal polyp [Recovering/Resolving]
  - Anastomotic ulcer [Recovering/Resolving]
  - Foot operation [Recovering/Resolving]
  - Deep vein thrombosis [Recovering/Resolving]
  - Condition aggravated [Recovering/Resolving]
  - Arthralgia [Recovered/Resolved]
  - Fistula [Recovered/Resolved]
  - Myalgia [Unknown]
  - Headache [Recovering/Resolving]
  - Mucosal membrane hyperplasia [Recovered/Resolved]
  - Diverticulum intestinal [Not Recovered/Not Resolved]
  - Haemorrhoids [Not Recovered/Not Resolved]

NARRATIVE: CASE EVENT DATE: 20220101
